FAERS Safety Report 7235991-7 (Version None)
Quarter: 2011Q1

REPORT INFORMATION
  Report Type: 
  Country: None (occurrence: None)
  Receive Date: 20110120
  Receipt Date: 20110118
  Transmission Date: 20110831
  Serious: Yes (Hospitalization)
  Sender: FDA-Public Use
  Company Number: B0694400A

PATIENT
  Age: 64 Year
  Sex: Male

DRUGS (3)
  1. GLIVEC [Suspect]
     Indication: MALIGNANT MAST CELL NEOPLASM
     Dosage: 400MG PER DAY
     Route: 048
     Dates: end: 20100921
  2. METHOTREXATE [Suspect]
     Indication: ARTHRITIS
     Route: 048
     Dates: start: 20100301, end: 20100922
  3. ZINAT [Suspect]
     Dosage: 500MG TWICE PER DAY
     Route: 048
     Dates: start: 20100915, end: 20100922

REACTIONS (1)
  - AGRANULOCYTOSIS [None]
